FAERS Safety Report 5014832-2 (Version None)
Quarter: 2006Q2

REPORT INFORMATION
  Report Type: 
  Country: None (occurrence: None)
  Receive Date: 20060419
  Receipt Date: 20051013
  Transmission Date: 20061013
  Serious: Yes (Hospitalization, Other)
  Sender: FDA-Public Use
  Company Number: 2005-03936

PATIENT
  Age: 32 Year
  Sex: Female
  Weight: 51.7 kg

DRUGS (5)
  1. FERRLECIT [Suspect]
     Indication: DRUG INTOLERANCE
     Dosage: 125 MG INFUSED OVER 1 HR, INTRAVENOUS
     Route: 042
     Dates: start: 20051013, end: 20051013
  2. FERRLECIT [Suspect]
     Indication: IRON DEFICIENCY
     Dosage: 125 MG INFUSED OVER 1 HR, INTRAVENOUS
     Route: 042
     Dates: start: 20051013, end: 20051013
  3. UNSPECIFIED BIRTH CONTROL PILL [Concomitant]
  4. LISINOPRIL [Concomitant]
  5. UNSPECIFIED NASAL SPRAY [Concomitant]

REACTIONS (7)
  - HYPERSENSITIVITY [None]
  - HYPOAESTHESIA [None]
  - HYPOTENSION [None]
  - NAUSEA [None]
  - STOMACH DISCOMFORT [None]
  - SYNCOPE [None]
  - VOMITING [None]
